FAERS Safety Report 7930833-6 (Version None)
Quarter: 2011Q4

REPORT INFORMATION
  Report Type: 
  Country: None (occurrence: None)
  Receive Date: 20111121
  Receipt Date: 20111109
  Transmission Date: 20120403
  Serious: Yes (Hospitalization)
  Sender: FDA-Public Use
  Company Number: CA-PFIZER INC-2011191880

PATIENT
  Age: 67 Year
  Sex: Female
  Weight: 90.3 kg

DRUGS (4)
  1. ATACAND HCT [Concomitant]
     Indication: HYPERTENSION
     Dosage: UNK
     Route: 048
     Dates: start: 20060101, end: 20110814
  2. ATACAND HCT [Concomitant]
     Dosage: UNK
     Route: 048
     Dates: start: 20110818
  3. PROCHLORPERAZINE [Concomitant]
     Indication: NAUSEA
     Dosage: UNK
     Route: 048
     Dates: start: 20110811
  4. SUTENT [Suspect]
     Indication: GLIOMA
     Dosage: 50 MG, 1X/DAY (4WEEKS/ 6WEEKS)
     Dates: start: 20110726, end: 20110815

REACTIONS (2)
  - HYPOTENSION [None]
  - ELECTROLYTE IMBALANCE [None]
